FAERS Safety Report 9753183 (Version 1)
Quarter: 2013Q4

REPORT INFORMATION
  Report Type: Spontaneous
  Country: US (occurrence: US)
  Receive Date: 20131213
  Receipt Date: 20131213
  Transmission Date: 20140711
  Serious: No
  Sender: FDA-Public Use
  Company Number: US-GILEAD-2010-0026919

PATIENT
  Sex: Male
  Weight: 87.54 kg

DRUGS (5)
  1. LETAIRIS [Suspect]
     Indication: PULMONARY ARTERIAL HYPERTENSION
     Route: 048
     Dates: start: 20080702
  2. FOLIC ACID [Concomitant]
  3. LACTULOSE [Concomitant]
  4. HYDROXYZINE [Concomitant]
  5. GARLIC [Concomitant]

REACTIONS (1)
  - Palpitations [Unknown]
